FAERS Safety Report 5827771-1 (Version None)
Quarter: 2008Q3

REPORT INFORMATION
  Report Type: 
  Country: None (occurrence: None)
  Receive Date: 20080730
  Receipt Date: 20080724
  Transmission Date: 20090109
  Serious: Yes (Hospitalization, Other)
  Sender: FDA-Public Use
  Company Number: US-GILEAD-2008-0017255

PATIENT
  Age: 48 Year
  Sex: Male
  Weight: 52.21 kg

DRUGS (5)
  1. TRUVADA [Suspect]
     Route: 048
     Dates: start: 20080311
  2. SUSTIVA [Concomitant]
     Route: 048
     Dates: start: 20061130
  3. HYDROCHLOROTHIAZIDE [Concomitant]
     Indication: HYPERTENSION
  4. LISINOPRIL [Concomitant]
     Indication: HYPERTENSION
  5. NEURONTIN [Concomitant]

REACTIONS (3)
  - INJURY [None]
  - LIVER INJURY [None]
  - SUICIDE ATTEMPT [None]
